FAERS Safety Report 10100313 (Version 1)
Quarter: 2014Q2

REPORT INFORMATION
  Report Type: Spontaneous
  Country: US (occurrence: US)
  Receive Date: 20140423
  Receipt Date: 20140423
  Transmission Date: 20141212
  Serious: No
  Sender: FDA-Public Use
  Company Number: US-ENDO PHARMACEUTICALS INC.-CLON20130008

PATIENT
  Sex: Female

DRUGS (3)
  1. CLONIDINE HCL TABLETS [Suspect]
     Indication: HYPERTENSION
     Dosage: UNK
     Route: 048
     Dates: start: 2012, end: 2012
  2. CARISOPRODOL [Concomitant]
     Indication: FIBROMYALGIA
     Dosage: UNK
     Route: 048
  3. CARISOPRODOL [Concomitant]
     Indication: MUSCLE RELAXANT THERAPY

REACTIONS (1)
  - Drug ineffective [Recovered/Resolved]
